FAERS Safety Report 8890179 (Version 1)
Quarter: 2012Q4

REPORT INFORMATION
  Report Type: Spontaneous
  Country: JP (occurrence: None)
  Receive Date: 20121031
  Receipt Date: 20121031
  Transmission Date: 20130627
  Serious: Yes (Life-Threatening)
  Sender: FDA-Public Use
  Company Number: JP 2006 0001

PATIENT
  Age: 76 Year
  Sex: Male

DRUGS (3)
  1. LIPIODOL (ETHIODIZED OIL) (ETHIODIZED OIL) [Suspect]
     Indication: TRANSCATHETER ARTERIAL EMBOLIZATION
     Dosage: ( 1 in 1 Total)
     Route: 013
  2. ADRIACIN [Suspect]
     Indication: TRANSCATHETER ARTERIAL EMBOLIZATION
     Dosage: (1 in 1 Total)
     Route: 013
  3. SPONGEL (GELATIN SPONGE PARTICLES) [Suspect]
     Indication: TRANSCATHETER ARTERIAL EMBOLIZATION
     Dosage: (1 in 1 Total)
     Route: 013

REACTIONS (5)
  - Cerebral artery embolism [None]
  - Off label use [None]
  - Coma [None]
  - Hypoxia [None]
  - Pleural effusion [None]
